FAERS Safety Report 9413058 (Version 1)
Quarter: 2013Q3

REPORT INFORMATION
  Report Type: Spontaneous
  Country: GB (occurrence: GB)
  Receive Date: 20130722
  Receipt Date: 20130722
  Transmission Date: 20140515
  Serious: Yes (Other)
  Sender: FDA-Public Use
  Company Number: GB-GLAXOSMITHKLINE-B0908628A

PATIENT
  Age: 65 Year
  Sex: Male
  Weight: 82.55 kg

DRUGS (2)
  1. TROBALT [Suspect]
     Indication: EPILEPSY
     Dosage: 1200MG PER DAY
     Route: 048
     Dates: start: 20121203, end: 20130526
  2. KEPPRA [Concomitant]

REACTIONS (6)
  - Diplopia [Recovered/Resolved]
  - Urinary hesitation [Recovering/Resolving]
  - Rash [Not Recovered/Not Resolved]
  - Acne [Unknown]
  - Contusion [Unknown]
  - Eczema [Unknown]
